FAERS Safety Report 20725406 (Version 2)
Quarter: 2022Q2

REPORT INFORMATION
  Report Type: Spontaneous
  Country: GB (occurrence: None)
  Receive Date: 20220419
  Receipt Date: 20220421
  Transmission Date: 20220721
  Serious: Yes (Other)
  Sender: FDA-Public Use
  Company Number: 2022A143421

PATIENT
  Age: 38 Year
  Sex: Female
  Weight: 82 kg

DRUGS (8)
  1. DAPAGLIFLOZIN [Suspect]
     Active Substance: DAPAGLIFLOZIN
     Route: 065
     Dates: start: 20220118
  2. CLOTRIMAZOLE [Concomitant]
     Active Substance: CLOTRIMAZOLE
     Dosage: 2-3 TIMES/DAY
     Route: 061
     Dates: start: 20220322, end: 20220323
  3. DERMOL [Concomitant]
     Active Substance: BENZALKONIUM CHLORIDE\CHLORHEXIDINE HYDROCHLORIDE\ISOPROPYL MYRISTATE\PARAFFIN
     Dosage: USE AS DIRECTED
     Dates: start: 20220322
  4. EMPAGLIFLOZIN [Concomitant]
     Active Substance: EMPAGLIFLOZIN
     Dosage: 1
     Dates: start: 20211122, end: 20220118
  5. FLUCLOXACILLIN [Concomitant]
     Active Substance: FLUCLOXACILLIN
     Dosage: 1
     Dates: start: 20220322, end: 20220329
  6. FLUCONAZOLE [Concomitant]
     Active Substance: FLUCONAZOLE
     Dosage: AS A SINGLE DOSE
     Dates: start: 20220118, end: 20220119
  7. LIDOCAINE [Concomitant]
     Active Substance: LIDOCAINE
     Dosage: AS REQUIRED
     Route: 061
     Dates: start: 20220322, end: 20220323
  8. TRULICITY [Concomitant]
     Active Substance: DULAGLUTIDE
     Dosage: USE AS DIRECTED
     Dates: start: 20220330

REACTIONS (1)
  - Vulvovaginal pruritus [Recovered/Resolved]

NARRATIVE: CASE EVENT DATE: 20220330
